FAERS Safety Report 8958779 (Version 1)
Quarter: 2012Q4

REPORT INFORMATION
  Report Type: Spontaneous
  Country: US (occurrence: None)
  Receive Date: 20121206
  Receipt Date: 20121206
  Transmission Date: 20130627
  Serious: Yes (Other)
  Sender: FDA-Public Use
  Company Number: None

PATIENT
  Age: 34 Year
  Sex: Female
  Weight: 62.14 kg

DRUGS (1)
  1. MIRENA [Suspect]

REACTIONS (5)
  - Vaginal haemorrhage [None]
  - Depression [None]
  - Device dislocation [None]
  - Quality of life decreased [None]
  - Fatigue [None]
